FAERS Safety Report 7994190-1 (Version None)
Quarter: 2011Q4

REPORT INFORMATION
  Report Type: 
  Country: None (occurrence: None)
  Receive Date: 20111220
  Receipt Date: 20111212
  Transmission Date: 20120403
  Serious: Yes (Hospitalization)
  Sender: FDA-Public Use
  Company Number: FR-UCBSA-043368

PATIENT
  Age: 56 Year
  Sex: Female

DRUGS (20)
  1. KEPPRA [Suspect]
     Route: 048
     Dates: start: 20110912, end: 20110914
  2. VEMURAFENIB [Suspect]
     Dosage: 3 TABLETS
     Route: 048
     Dates: start: 20110920
  3. NEXIUM [Concomitant]
     Dates: start: 20110901
  4. VEMURAFENIB [Suspect]
     Indication: METASTATIC MALIGNANT MELANOMA
     Dosage: 4 TABLETS IN THE MORNING AND IN THE EVENING
     Route: 048
     Dates: start: 20110829, end: 20110910
  5. ZELITRIX [Concomitant]
     Dates: start: 20110901
  6. PENTACARINAT [Concomitant]
     Dates: start: 20110901
  7. KEPPRA [Suspect]
     Indication: EPILEPSY
     Route: 048
     Dates: start: 20110815, end: 20110911
  8. KEPPRA [Suspect]
     Route: 048
     Dates: start: 20110915
  9. XYZAL [Concomitant]
     Dates: start: 20110901
  10. CALCIUM CARBONATE [Concomitant]
     Dates: start: 20110901
  11. DAFLON [Concomitant]
     Dates: start: 20110901
  12. URBANYL [Suspect]
     Indication: EPILEPSY
     Dosage: DAILY DOSE: 5 MG
     Route: 048
     Dates: start: 20110815, end: 20110923
  13. MUPHORAN [Suspect]
     Dosage: 165 MG BY COURSE ,SECOND COURSE
     Route: 042
     Dates: start: 20110825, end: 20110825
  14. MUPHORAN [Suspect]
     Dosage: 165 MG BY COURSE,FIRST COURSE
     Route: 042
     Dates: start: 20110818, end: 20110818
  15. ATARAX [Concomitant]
     Dates: start: 20110901
  16. PREDNISONE TAB [Concomitant]
     Dates: start: 20110901
  17. REPAGLINIDE [Concomitant]
     Dates: start: 20110901
  18. MUPHORAN [Suspect]
     Indication: METASTATIC MALIGNANT MELANOMA
     Dosage: 165 MG BY COURSE,THIRD COURSE
     Route: 042
     Dates: start: 20110901, end: 20110901
  19. PROCTOLOG [Concomitant]
     Dates: start: 20110901
  20. LEVEMIR [Concomitant]
     Dates: start: 20110901

REACTIONS (5)
  - PYREXIA [None]
  - THROMBOCYTOPENIA [None]
  - RASH MACULO-PAPULAR [None]
  - LEUKOPENIA [None]
  - AGRANULOCYTOSIS [None]
